FAERS Safety Report 12013101 (Version 13)
Quarter: 2016Q4

REPORT INFORMATION
  Report Type: Report from Study
  Country: JP (occurrence: JP)
  Receive Date: 20160205
  Receipt Date: 20161228
  Transmission Date: 20170206
  Serious: Yes (Life-Threatening, Hospitalization, Other)
  Sender: FDA-Public Use
  Company Number: JP-ALEXION PHARMACEUTICALS INC.-A201505148

PATIENT
  Age: 4 Year
  Sex: Male
  Weight: 14 kg

DRUGS (11)
  1. BAKTAR [Concomitant]
     Active Substance: SULFAMETHOXAZOLE\TRIMETHOPRIM
     Indication: PROPHYLAXIS
     Dosage: 0.5 DF, QD
     Route: 048
     Dates: end: 20151027
  2. GLUCONSAN K [Concomitant]
     Indication: PRODUCT USED FOR UNKNOWN INDICATION
     Dosage: 1.5 G, TID
     Route: 048
  3. HYALEIN [Concomitant]
     Active Substance: HYALURONATE SODIUM
     Indication: PROPHYLAXIS
     Dosage: SEVERAL DROPS, 2~4TIMES DAILY
     Route: 047
     Dates: start: 20160527, end: 20160622
  4. DANTRIUM [Concomitant]
     Active Substance: DANTROLENE SODIUM
     Indication: PRODUCT USED FOR UNKNOWN INDICATION
     Dosage: 5 MG, TID
     Route: 048
  5. STRENSIQ [Suspect]
     Active Substance: ASFOTASE ALFA
     Indication: HYPOPHOSPHATASIA
     Dosage: 2 MG/KG, TIW
     Route: 058
     Dates: start: 20120627
  6. ADEROXAL [Concomitant]
     Active Substance: PYRIDOXAL PHOSPHATE
     Indication: PRODUCT USED FOR UNKNOWN INDICATION
     Dosage: 0.854 G, TID
     Route: 048
  7. THYRADIN-S [Concomitant]
     Active Substance: LEVOTHYROXINE
     Indication: PRODUCT USED FOR UNKNOWN INDICATION
     Dosage: 0.3 G, QD
     Route: 048
  8. PHENOBAL                           /00023201/ [Concomitant]
     Active Substance: PHENOBARBITAL
     Indication: PROPHYLAXIS
     Dosage: 0.3 G, BID
     Route: 048
  9. L CARTIN FF [Concomitant]
     Active Substance: LEVOCARNITINE
     Indication: PRODUCT USED FOR UNKNOWN INDICATION
     Dosage: 1.5 ML, TID
     Route: 048
  10. KENEI G [Concomitant]
     Active Substance: GLYCERIN
     Indication: PROPHYLAXIS
     Dosage: 40 ML, QD
     Dates: start: 20160824, end: 20160914
  11. BIOFERMIN                          /01617201/ [Concomitant]
     Active Substance: BACILLUS SUBTILIS\LACTOBACILLUS ACIDOPHILUS\STREPTOCOCCUS FAECAIS
     Indication: PROPHYLAXIS AGAINST DIARRHOEA
     Dosage: 0.3 G, TID
     Route: 048

REACTIONS (19)
  - Oxygen saturation decreased [Recovered/Resolved]
  - Pneumonia [Recovered/Resolved]
  - Tooth disorder [Not Recovered/Not Resolved]
  - Inappropriate schedule of drug administration [Recovered/Resolved]
  - Oxygen saturation decreased [Recovered/Resolved]
  - Oxygen saturation decreased [Recovered/Resolved]
  - Heart rate decreased [Recovered/Resolved]
  - Oxygen saturation decreased [Recovered/Resolved]
  - Oxygen saturation decreased [Recovered/Resolved]
  - Oxygen saturation decreased [Recovered/Resolved]
  - Heart rate decreased [Recovered/Resolved]
  - Seizure [Recovered/Resolved]
  - Tooth loss [Not Recovered/Not Resolved]
  - Cyanosis [Recovered/Resolved]
  - Cyanosis [Recovered/Resolved]
  - Muscle twitching [Recovered/Resolved]
  - Oxygen saturation decreased [Recovered/Resolved]
  - Heart rate decreased [Recovered/Resolved]
  - Oxygen saturation decreased [Recovered/Resolved]

NARRATIVE: CASE EVENT DATE: 20151125
